FAERS Safety Report 5987197-7 (Version None)
Quarter: 2008Q4

REPORT INFORMATION
  Report Type: 
  Country: None (occurrence: None)
  Receive Date: 20081209
  Receipt Date: 20081201
  Transmission Date: 20090506
  Serious: Yes (Other)
  Sender: FDA-Public Use
  Company Number: AT-ELI_LILLY_AND_COMPANY-AT200811005409

PATIENT
  Sex: Female
  Weight: 77 kg

DRUGS (4)
  1. BYETTA [Suspect]
     Indication: TYPE 2 DIABETES MELLITUS
     Dosage: 10 UG, 2/D
     Route: 058
     Dates: start: 20070701, end: 20081030
  2. GLIMEPIRIDE [Concomitant]
     Dosage: 3 MG, 2/D
     Route: 065
  3. METFORMIN HCL [Concomitant]
     Dosage: 850 MG, EACH EVENING
     Route: 065
  4. THYREX [Concomitant]
     Dosage: 0.1 MG, EACH MORNING
     Route: 065

REACTIONS (2)
  - PANCREATITIS [None]
  - WEIGHT DECREASED [None]
